FAERS Safety Report 25059228 (Version 2)
Quarter: 2025Q1

REPORT INFORMATION
  Report Type: Report from Study
  Country: US (occurrence: US)
  Receive Date: 20250310
  Receipt Date: 20250313
  Transmission Date: 20250409
  Serious: Yes (Other)
  Sender: UCB
  Company Number: US-UCBSA-2025013616

PATIENT
  Age: 77 Year
  Sex: Female

DRUGS (2)
  1. LACOSAMIDE [Suspect]
     Active Substance: LACOSAMIDE
     Indication: Seizure
     Dosage: 150 MILLIGRAM, 2X/DAY (BID)
  2. LACOSAMIDE [Suspect]
     Active Substance: LACOSAMIDE
     Dosage: 2X/DAY (BID) (150 MILLIGRAMS TWICE A DAY AND 50 MILLIGRAMS EVERY NIGHT (PM))

REACTIONS (5)
  - Neoplasm [Not Recovered/Not Resolved]
  - Tumour excision [Not Recovered/Not Resolved]
  - Dementia [Not Recovered/Not Resolved]
  - Seizure [Unknown]
  - Product use issue [Unknown]

NARRATIVE: CASE EVENT DATE: 20250309
